FAERS Safety Report 24159060 (Version 1)
Quarter: 2024Q3

REPORT INFORMATION
  Report Type: Spontaneous
  Country: US (occurrence: US)
  Receive Date: 20240731
  Receipt Date: 20240731
  Transmission Date: 20241016
  Serious: No
  Sender: COVIS PHARMA
  Company Number: US-Covis Pharma GmbH-2024COV00923

PATIENT
  Age: 85 Year
  Sex: Female

DRUGS (1)
  1. FERAHEME [Suspect]
     Active Substance: FERUMOXYTOL NON-STOICHIOMETRIC MAGNETITE
     Indication: Iron deficiency
     Dates: end: 20240712

REACTIONS (3)
  - Swelling [Not Recovered/Not Resolved]
  - Induration [Not Recovered/Not Resolved]
  - Nausea [Not Recovered/Not Resolved]
